FAERS Safety Report 11999378 (Version 1)
Quarter: 2016Q1

REPORT INFORMATION
  Report Type: Spontaneous
  Country: US (occurrence: None)
  Receive Date: 20160203
  Receipt Date: 20160203
  Transmission Date: 20160526
  Serious: No
  Sender: FDA-Public Use
  Company Number: None

PATIENT

DRUGS (1)
  1. PREDNISOLONE PREDNISOLONE [Suspect]
     Active Substance: PREDNISOLONE
     Dosage: 15MG/5 ML, LIQUID

REACTIONS (2)
  - Intercepted drug dispensing error [None]
  - Transcription medication error [None]

NARRATIVE: CASE EVENT DATE: 2015
